FAERS Safety Report 7952327-4 (Version None)
Quarter: 2011Q4

REPORT INFORMATION
  Report Type: 
  Country: None (occurrence: None)
  Receive Date: 20111201
  Receipt Date: 20111122
  Transmission Date: 20120403
  Serious: Yes (Death, Hospitalization, Other)
  Sender: FDA-Public Use
  Company Number: DE-ACTELION-A-US2010-42354

PATIENT

DRUGS (2)
  1. SILDENAFIL [Concomitant]
  2. VENTAVIS [Suspect]
     Indication: PRODUCT USED FOR UNKNOWN INDICATION
     Dosage: 50 UG, QID
     Route: 055
     Dates: start: 20090115

REACTIONS (5)
  - CYANOSIS [None]
  - DEATH [None]
  - FALL [None]
  - DIZZINESS [None]
  - FEELING HOT [None]
